FAERS Safety Report 23397927 (Version 5)
Quarter: 2024Q2

REPORT INFORMATION
  Report Type: Spontaneous
  Country: US (occurrence: US)
  Receive Date: 20240112
  Receipt Date: 20240531
  Transmission Date: 20240716
  Serious: Yes (Other)
  Sender: FDA-Public Use
  Company Number: US-PFIZER INC-PV202400003363

PATIENT
  Age: 68 Year
  Sex: Female

DRUGS (4)
  1. IBRANCE [Suspect]
     Active Substance: PALBOCICLIB
     Indication: Breast cancer metastatic
     Dosage: 125 MG, CYCLIC (1 TABLET DAILY ON DAYS 1 TO 21 ON A 28 DAY CYCLE)
     Route: 048
     Dates: start: 20240108
  2. IBRANCE [Suspect]
     Active Substance: PALBOCICLIB
     Indication: Breast cancer
     Dosage: 75 MG
  3. IBRANCE [Suspect]
     Active Substance: PALBOCICLIB
     Indication: Hepatic cancer
  4. FULVESTRANT [Concomitant]
     Active Substance: FULVESTRANT
     Dosage: ONCE IN 28 DAYS

REACTIONS (3)
  - Thrombocytopenia [Unknown]
  - Neoplasm progression [Unknown]
  - Blood test abnormal [Unknown]
